FAERS Safety Report 9276171 (Version 1)
Quarter: 2013Q2

REPORT INFORMATION
  Report Type: Spontaneous
  Country: US (occurrence: US)
  Receive Date: 20130507
  Receipt Date: 20130507
  Transmission Date: 20140414
  Serious: No
  Sender: FDA-Public Use
  Company Number: US-B.I. PHARMACEUTICALS,INC./RIDGEFIELD-2013-BI-12395BP

PATIENT
  Age: 74 Year
  Sex: Male
  Weight: 73 kg

DRUGS (3)
  1. SPIRIVA [Suspect]
     Indication: HIATUS HERNIA
     Dosage: 18 MCG
     Route: 055
     Dates: start: 2010
  2. OMEPRAZOLE [Concomitant]
     Indication: HIATUS HERNIA
     Dosage: 80 MG
     Route: 048
  3. BENAZEPRIL [Concomitant]
     Indication: HYPERTENSION
     Dosage: 10 MG
     Route: 048

REACTIONS (1)
  - Incorrect route of drug administration [Recovered/Resolved]
